FAERS Safety Report 14340124 (Version 1)
Quarter: 2017Q4

REPORT INFORMATION
  Report Type: Spontaneous
  Country: GR (occurrence: GR)
  Receive Date: 20171231
  Receipt Date: 20171231
  Transmission Date: 20180321
  Serious: Yes (Hospitalization, Other)
  Sender: FDA-Public Use
  Company Number: GR-TEVA-2017-GR-838263

PATIENT
  Age: 43 Year
  Sex: Male

DRUGS (5)
  1. TRIHEXYPHENIDYL [Interacting]
     Active Substance: TRIHEXYPHENIDYL
     Route: 048
  2. OLANZAPINE. [Suspect]
     Active Substance: OLANZAPINE
     Route: 065
  3. FENTANYL. [Concomitant]
     Active Substance: FENTANYL
     Route: 048
  4. ALPRAZOLAM. [Interacting]
     Active Substance: ALPRAZOLAM
     Route: 065
  5. METHADONE [Interacting]
     Active Substance: METHADONE HYDROCHLORIDE
     Indication: DRUG DEPENDENCE
     Dosage: FORMULATION: PILL
     Route: 048

REACTIONS (8)
  - Drug abuse [Recovering/Resolving]
  - Toxicity to various agents [Recovering/Resolving]
  - Overdose [Recovering/Resolving]
  - Miosis [Unknown]
  - Bezoar [Recovered/Resolved]
  - Drug interaction [Recovered/Resolved]
  - Respiratory failure [Unknown]
  - Coma [Recovered/Resolved]
